FAERS Safety Report 17877158 (Version 1)
Quarter: 2020Q2

REPORT INFORMATION
  Report Type: Spontaneous
  Country: US (occurrence: US)
  Receive Date: 20200609
  Receipt Date: 20200609
  Transmission Date: 20200714
  Serious: Yes (Other)
  Sender: FDA-Public Use
  Company Number: US-GLAXOSMITHKLINE-US2020AMR095099

PATIENT
  Sex: Female

DRUGS (2)
  1. ZEJULA [Suspect]
     Active Substance: NIRAPARIB
     Dosage: 200 MG, QD
     Dates: start: 20200502
  2. ZEJULA [Suspect]
     Active Substance: NIRAPARIB
     Indication: OVARIAN CANCER
     Dosage: 200 MG, QD
     Dates: start: 20200105

REACTIONS (7)
  - Blood glucose increased [Unknown]
  - Stent placement [Unknown]
  - Tumour marker increased [Unknown]
  - Hydronephrosis [Unknown]
  - Blood magnesium increased [Unknown]
  - Underdose [Unknown]
  - Blood pressure increased [Unknown]
